FAERS Safety Report 19910385 (Version 1)
Quarter: 2021Q4

REPORT INFORMATION
  Report Type: Spontaneous
  Country: CA (occurrence: CA)
  Receive Date: 20211004
  Receipt Date: 20211004
  Transmission Date: 20220303
  Serious: Yes (Other)
  Sender: FDA-Public Use
  Company Number: CA-AUROBINDO-AUR-APL-2021-040896

PATIENT
  Age: 76 Year
  Sex: Female
  Weight: 70 kg

DRUGS (9)
  1. ROCURONIUM [Suspect]
     Active Substance: ROCURONIUM BROMIDE
     Indication: General anaesthesia
     Dosage: 30 MILLIGRAM
     Route: 065
  2. SUCCINYLCHOLINE CHLORIDE [Suspect]
     Active Substance: SUCCINYLCHOLINE CHLORIDE
     Indication: Oxygen saturation decreased
     Dosage: 140 MILLIGRAM
     Route: 065
  3. DESFLURANE [Concomitant]
     Active Substance: DESFLURANE
     Indication: General anaesthesia
     Dosage: UNK
     Route: 065
  4. FENTANYL [Concomitant]
     Active Substance: FENTANYL
     Indication: General anaesthesia
     Dosage: 75 MICROGRAM
     Route: 065
  5. GLYCOPYRROLATE [Concomitant]
     Active Substance: GLYCOPYRROLATE
     Indication: Product used for unknown indication
     Dosage: 0.4 MILLIGRAM
     Route: 065
  6. NEOSTIGMINE. [Concomitant]
     Active Substance: NEOSTIGMINE METHYLSULFATE
     Indication: Myasthenia gravis
     Dosage: 2.5 MILLIGRAM
     Route: 042
  7. OXYGEN [Concomitant]
     Active Substance: OXYGEN
     Indication: General anaesthesia
     Dosage: UNK
     Route: 065
  8. PROPOFOL [Concomitant]
     Active Substance: PROPOFOL
     Indication: Oxygen saturation decreased
     Dosage: 50 MILLIGRAM
     Route: 065
  9. PROPOFOL [Concomitant]
     Active Substance: PROPOFOL
     Indication: General anaesthesia
     Dosage: 120 MILLIGRAM
     Route: 065

REACTIONS (2)
  - Atelectasis [Unknown]
  - Cholinergic syndrome [Unknown]
